FAERS Safety Report 25633683 (Version 1)
Quarter: 2025Q3

REPORT INFORMATION
  Report Type: Spontaneous
  Country: US (occurrence: US)
  Receive Date: 20250801
  Receipt Date: 20250801
  Transmission Date: 20251021
  Serious: Yes (Hospitalization)
  Sender: ROCHE
  Company Number: US-CHEPLA-2025008986

PATIENT
  Age: 80 Year
  Sex: Female

DRUGS (14)
  1. GANCICLOVIR [Suspect]
     Active Substance: GANCICLOVIR
     Indication: Renal failure
     Route: 042
  2. VALGANCICLOVIR [Suspect]
     Active Substance: VALGANCICLOVIR
     Indication: Renal failure
     Route: 065
  3. VALGANCICLOVIR [Suspect]
     Active Substance: VALGANCICLOVIR
     Indication: Cytomegalovirus chorioretinitis
  4. VENETOCLAX [Suspect]
     Active Substance: VENETOCLAX
     Indication: Product use in unapproved indication
     Route: 065
     Dates: start: 201808
  5. FOSCARNET [Suspect]
     Active Substance: FOSCARNET
     Indication: Renal failure
     Route: 050
  6. ENTECAVIR [Concomitant]
     Active Substance: ENTECAVIR
     Indication: Chronic hepatitis B
  7. TAMOXIFEN [Concomitant]
     Active Substance: TAMOXIFEN
  8. DEXAMETHASONE [Concomitant]
     Active Substance: DEXAMETHASONE
     Indication: Plasma cell myeloma
  9. DEXAMETHASONE [Concomitant]
     Active Substance: DEXAMETHASONE
     Dates: end: 201512
  10. DEXAMETHASONE [Concomitant]
     Active Substance: DEXAMETHASONE
     Dates: end: 201603
  11. IXAZOMIB [Concomitant]
     Active Substance: IXAZOMIB
     Dates: end: 201711
  12. IXAZOMIB CITRATE [Concomitant]
     Active Substance: IXAZOMIB CITRATE
  13. HUMAN IMMUNOGLOBULIN G [Concomitant]
     Active Substance: HUMAN IMMUNOGLOBULIN G
     Indication: Hypogammaglobulinaemia
  14. ELRANATAMAB [Concomitant]
     Active Substance: ELRANATAMAB

REACTIONS (3)
  - Pneumonia bacterial [Recovered/Resolved]
  - Coronavirus pneumonia [Recovered/Resolved]
  - Diarrhoea [Not Recovered/Not Resolved]
